FAERS Safety Report 5304742-5 (Version None)
Quarter: 2007Q2

REPORT INFORMATION
  Report Type: 
  Country: None (occurrence: None)
  Receive Date: 20070423
  Receipt Date: 20070417
  Transmission Date: 20071010
  Serious: Yes (Other)
  Sender: FDA-Public Use
  Company Number: GB-ALLERGAN-0703873US

PATIENT
  Age: 97 Year
  Sex: Female

DRUGS (2)
  1. COMBIGAN[TM] [Suspect]
     Indication: DRUG USE FOR UNKNOWN INDICATION
     Route: 047
     Dates: start: 20070201, end: 20070410
  2. LATANOPROST [Concomitant]
     Route: 047
     Dates: start: 20030101

REACTIONS (1)
  - EYELID OEDEMA [None]
